FAERS Safety Report 12860204 (Version 1)
Quarter: 2016Q4

REPORT INFORMATION
  Report Type: Spontaneous
  Country: US (occurrence: US)
  Receive Date: 20161019
  Receipt Date: 20161019
  Transmission Date: 20170207
  Serious: No
  Sender: FDA-Public Use
  Company Number: US-AMGEN-USASP2016142117

PATIENT
  Age: 51 Year
  Sex: Female

DRUGS (2)
  1. ENBREL [Suspect]
     Active Substance: ETANERCEPT
     Indication: PSORIASIS
     Dosage: 50 MG, 2 TIMES/WK
     Route: 058
     Dates: start: 201604
  2. ADVIL [Concomitant]
     Active Substance: IBUPROFEN
     Dosage: UNK

REACTIONS (2)
  - Nasopharyngitis [Not Recovered/Not Resolved]
  - Skin fissures [Not Recovered/Not Resolved]

NARRATIVE: CASE EVENT DATE: 2016
